FAERS Safety Report 19239466 (Version 1)
Quarter: 2021Q2

REPORT INFORMATION
  Report Type: Spontaneous
  Country: NL (occurrence: NL)
  Receive Date: 20210510
  Receipt Date: 20210510
  Transmission Date: 20210717
  Serious: Yes (Death, Other)
  Sender: FDA-Public Use
  Company Number: NL-PURDUE-USA-2021-0252610

PATIENT
  Age: 82 Year
  Sex: Female

DRUGS (2)
  1. OXYNORM [Suspect]
     Active Substance: OXYCODONE HYDROCHLORIDE
     Indication: ARTHRALGIA
     Dosage: 2X DAAGS 1 TABLET [STRENGTH 10 MG]
     Route: 065
     Dates: start: 20210406
  2. OXYCONTIN [Suspect]
     Active Substance: OXYCODONE HYDROCHLORIDE
     Indication: ARTHRALGIA
     Dosage: 1X DAAGS 1 TABLET [STRENGTH 10 MG]
     Route: 065
     Dates: start: 20210406, end: 20210408

REACTIONS (2)
  - Cardiac arrest [Fatal]
  - Myalgia [Fatal]

NARRATIVE: CASE EVENT DATE: 20210415
